FAERS Safety Report 15672884 (Version 1)
Quarter: 2018Q4

REPORT INFORMATION
  Report Type: Report from Study
  Country: US (occurrence: US)
  Receive Date: 20181129
  Receipt Date: 20181129
  Transmission Date: 20190205
  Serious: No
  Sender: FDA-Public Use
  Company Number: US-TESARO-US-2018TSO03044

PATIENT
  Sex: Female

DRUGS (6)
  1. ZEJULA [Suspect]
     Active Substance: NIRAPARIB
     Dosage: 100MG ALTERNATING WITH 200MG
     Route: 048
     Dates: start: 20180102, end: 20180611
  2. ZEJULA [Suspect]
     Active Substance: NIRAPARIB
     Indication: OVARIAN CANCER
     Dosage: 300 MG, UNK
     Route: 048
     Dates: start: 20171004
  3. ZEJULA [Suspect]
     Active Substance: NIRAPARIB
     Dosage: 200 MG, DAILY, ALTERNATING WITH 100 MG EVERY THIRD DAY
     Route: 065
  4. ZEJULA [Suspect]
     Active Substance: NIRAPARIB
     Dosage: 200MG ALT WITH 100MG
     Route: 048
     Dates: start: 20180102
  5. ZEJULA [Suspect]
     Active Substance: NIRAPARIB
     Dosage: 100MG ALTERNATING WITH 200MG
     Route: 048
     Dates: start: 20180102
  6. ZEJULA [Suspect]
     Active Substance: NIRAPARIB
     Dosage: 200 MG, UNK
     Route: 048
     Dates: start: 20171017

REACTIONS (7)
  - Performance status decreased [Unknown]
  - Bone marrow failure [Unknown]
  - Abdominal distension [Not Recovered/Not Resolved]
  - Flatulence [Recovered/Resolved]
  - Decreased appetite [Recovered/Resolved]
  - Incorrect dose administered [Unknown]
  - Carbohydrate antigen 125 increased [Not Recovered/Not Resolved]
